FAERS Safety Report 15318526 (Version 1)
Quarter: 2018Q3

REPORT INFORMATION
  Report Type: Spontaneous
  Country: DE (occurrence: DE)
  Receive Date: 20180825
  Receipt Date: 20180825
  Transmission Date: 20181010
  Serious: Yes (Other)
  Sender: FDA-Public Use
  Company Number: DE-JNJFOC-20180827404

PATIENT
  Sex: Female

DRUGS (2)
  1. REGAINE FRAUEN SCHAUM [Suspect]
     Active Substance: MINOXIDIL
     Route: 061
  2. REGAINE FRAUEN SCHAUM [Suspect]
     Active Substance: MINOXIDIL
     Indication: ALOPECIA
     Route: 061

REACTIONS (1)
  - Respiratory distress [Recovered/Resolved]
